FAERS Safety Report 9502945 (Version 2)
Quarter: 2013Q4

REPORT INFORMATION
  Report Type: Report from Study
  Country: US (occurrence: US)
  Receive Date: 20130906
  Receipt Date: 20131008
  Transmission Date: 20140711
  Serious: Yes (Death, Hospitalization, Other)
  Sender: FDA-Public Use
  Company Number: PHEH2013US018648

PATIENT
  Sex: Female

DRUGS (10)
  1. AFINITOR [Suspect]
     Indication: BREAST CANCER
     Dosage: 10 MG, QD
     Route: 048
     Dates: start: 20130304, end: 201306
  2. ATIVAN [Concomitant]
  3. AROMASIN [Concomitant]
     Indication: BREAST CANCER
     Dosage: 25 MG, DAILY
     Route: 048
     Dates: start: 20130304
  4. PERCOCET [Concomitant]
  5. SPIRIVA [Concomitant]
  6. ALBUTEROL [Concomitant]
  7. PAMIDRONATE [Concomitant]
     Indication: BREAST CANCER
     Route: 042
     Dates: end: 20130401
  8. MARINOL [Concomitant]
     Indication: DECREASED APPETITE
     Dosage: 2.5 G, BID
     Dates: start: 20130418
  9. PROVENTIL [Concomitant]
     Indication: CHRONIC OBSTRUCTIVE PULMONARY DISEASE
     Dosage: QID, PRN
  10. TRICYCLIC ANTIDEPRESSANTS [Concomitant]

REACTIONS (6)
  - Breast cancer [Fatal]
  - Malignant neoplasm progression [Fatal]
  - Respiratory failure [Fatal]
  - Chronic obstructive pulmonary disease [Unknown]
  - Pleural effusion [Unknown]
  - Dyspnoea [Unknown]
